FAERS Safety Report 7526039-5 (Version None)
Quarter: 2011Q2

REPORT INFORMATION
  Report Type: 
  Country: None (occurrence: None)
  Receive Date: 20110526
  Receipt Date: 20110511
  Transmission Date: 20111010
  Serious: Yes (Disabling)
  Sender: FDA-Public Use
  Company Number: 2011AP000509

PATIENT
  Age: 27 Year
  Sex: Male

DRUGS (1)
  1. CARBAMAZEPINE [Suspect]
     Indication: PRODUCT USED FOR UNKNOWN INDICATION

REACTIONS (6)
  - INTRAOCULAR PRESSURE INCREASED [None]
  - VISION BLURRED [None]
  - BLINDNESS UNILATERAL [None]
  - PAPILLOEDEMA [None]
  - VISUAL ACUITY REDUCED [None]
  - EYE HAEMORRHAGE [None]
